FAERS Safety Report 16302973 (Version 1)
Quarter: 2019Q2

REPORT INFORMATION
  Report Type: Report from Study
  Country: DE (occurrence: DE)
  Receive Date: 20190513
  Receipt Date: 20190513
  Transmission Date: 20190711
  Serious: No
  Sender: FDA-Public Use
  Company Number: DE-ROCHE-2313739

PATIENT
  Age: 28 Year
  Sex: Female
  Weight: 90 kg

DRUGS (14)
  1. PREDNISOLONE. [Concomitant]
     Active Substance: PREDNISOLONE
     Indication: PROPHYLAXIS
     Route: 042
     Dates: start: 20190418
  2. PREDNISOLUT [PREDNISOLONE HEMISUCCINATE] [Concomitant]
     Route: 048
     Dates: start: 20180411
  3. PREGABALIN. [Concomitant]
     Active Substance: PREGABALIN
     Indication: PARAESTHESIA
     Route: 048
     Dates: start: 20180621
  4. RANITIDINE. [Concomitant]
     Active Substance: RANITIDINE
     Indication: PROPHYLAXIS
     Route: 048
     Dates: start: 20180328
  5. CORTISONE [Concomitant]
     Active Substance: CORTISONE\HYDROCORTISONE
  6. AERIUS (DESLORATADINE) [Concomitant]
     Active Substance: DESLORATADINE
     Route: 048
     Dates: start: 20180328
  7. ZOPICLON [Concomitant]
     Active Substance: ZOPICLONE
     Indication: INSOMNIA
     Route: 048
     Dates: start: 20180623
  8. URBASON [METHYLPREDNISOLONE] [Concomitant]
     Active Substance: METHYLPREDNISOLONE
     Indication: PARAESTHESIA
     Route: 042
     Dates: start: 20180622
  9. PREDNISOLUT [PREDNISOLONE HEMISUCCINATE] [Concomitant]
     Indication: PROPHYLAXIS
     Route: 042
     Dates: start: 20180329
  10. OCRELIZUMAB. [Suspect]
     Active Substance: OCRELIZUMAB
     Indication: MULTIPLE SCLEROSIS
     Route: 042
     Dates: start: 20180329
  11. RANITIDINE. [Concomitant]
     Active Substance: RANITIDINE
     Route: 048
     Dates: start: 20180410
  12. AERIUS (DESLORATADINE) [Concomitant]
     Active Substance: DESLORATADINE
     Indication: PROPHYLAXIS
     Route: 048
     Dates: start: 20180410
  13. PREGABALIN. [Concomitant]
     Active Substance: PREGABALIN
     Route: 048
     Dates: start: 20180430
  14. DEKRISTOL [Concomitant]
     Active Substance: CHOLECALCIFEROL
     Indication: PROPHYLAXIS
     Dosage: ONGOING
     Route: 048
     Dates: start: 20181011

REACTIONS (6)
  - Blood urea abnormal [Recovered/Resolved]
  - Stress [Recovered/Resolved]
  - Headache [Recovered/Resolved]
  - Flatulence [Recovered/Resolved]
  - Rhinorrhoea [Recovered/Resolved]
  - Nasopharyngitis [Recovered/Resolved]

NARRATIVE: CASE EVENT DATE: 20180423
